FAERS Safety Report 8670598 (Version 5)
Quarter: 2013Q2

REPORT INFORMATION
  Report Type: Report from Study
  Country: US (occurrence: US)
  Receive Date: 20120718
  Receipt Date: 20130509
  Transmission Date: 20140414
  Serious: Yes (Other)
  Sender: FDA-Public Use
  Company Number: US-ASTELLAS-2012US006218

PATIENT
  Age: 81 Year
  Sex: Female
  Weight: 54 kg

DRUGS (2)
  1. ERLOTINIB TABLET [Suspect]
     Indication: NON-SMALL CELL LUNG CANCER
     Dosage: 150 MG, UID/QD
     Route: 048
     Dates: start: 20120626, end: 20121005
  2. ERLOTINIB TABLET [Suspect]
     Dosage: 75 MG, UID/QD
     Route: 048
     Dates: start: 20121005

REACTIONS (16)
  - Eye pain [Not Recovered/Not Resolved]
  - Malignant neoplasm progression [Unknown]
  - Ageusia [Not Recovered/Not Resolved]
  - Blood urine present [Recovering/Resolving]
  - Hypophagia [Not Recovered/Not Resolved]
  - Pleuritic pain [Not Recovered/Not Resolved]
  - Cystitis [Not Recovered/Not Resolved]
  - Rash [Not Recovered/Not Resolved]
  - Abdominal pain upper [Not Recovered/Not Resolved]
  - Decreased appetite [Recovering/Resolving]
  - Weight decreased [Not Recovered/Not Resolved]
  - Decreased appetite [Recovering/Resolving]
  - Nausea [Unknown]
  - Diarrhoea [Unknown]
  - Rash [Unknown]
  - Asthenia [Unknown]
